FAERS Safety Report 10175928 (Version 1)
Quarter: 2014Q2

REPORT INFORMATION
  Report Type: Spontaneous
  Country: IN (occurrence: IN)
  Receive Date: 20140516
  Receipt Date: 20140516
  Transmission Date: 20141212
  Serious: Yes (Other)
  Sender: FDA-Public Use
  Company Number: IN-ASTELLAS-2014US005387

PATIENT
  Age: 34 Year
  Sex: Male

DRUGS (10)
  1. AMPHOTERICIN B [Suspect]
     Indication: ANTIFUNGAL TREATMENT
     Dosage: UNK, UNKNOWN FREQ.
     Route: 042
  2. AMPHOTERICIN B [Suspect]
     Indication: MENINGITIS CRYPTOCOCCAL
  3. AMPHOTERICIN B [Concomitant]
     Indication: MENINGITIS CRYPTOCOCCAL
     Dosage: UNK UNK, UNKNOWN FREQ.
     Route: 042
  4. FLUCYTOSINE [Concomitant]
     Indication: MENINGITIS CRYPTOCOCCAL
     Dosage: UNK UNK, UNKNOWN FREQ.
     Route: 065
  5. LAMIVUDINE [Concomitant]
     Indication: PRODUCT USED FOR UNKNOWN INDICATION
     Dosage: UNK UNK, UNKNOWN FREQ.
     Route: 065
  6. ZIDOVUDINE [Concomitant]
     Indication: PRODUCT USED FOR UNKNOWN INDICATION
     Dosage: UNK UNK, UNKNOWN FREQ.
     Route: 065
  7. NEVIRAPINE [Concomitant]
     Indication: PRODUCT USED FOR UNKNOWN INDICATION
     Dosage: UNK, UNKNOWN FREQ.
     Route: 065
  8. FLUCONAZOLE [Concomitant]
     Indication: PRODUCT USED FOR UNKNOWN INDICATION
     Dosage: UNK UNK, UNKNOWN FREQ.
     Route: 065
  9. DEXAMETHASONE [Concomitant]
     Indication: IMMUNE RECONSTITUTION INFLAMMATORY SYNDROME
     Route: 042
  10. DEXAMETHASONE [Concomitant]
     Indication: MENINGITIS CRYPTOCOCCAL

REACTIONS (2)
  - Immune reconstitution inflammatory syndrome [Recovered/Resolved]
  - Drug ineffective [Recovered/Resolved]
